FAERS Safety Report 5155490-6 (Version None)
Quarter: 2006Q4

REPORT INFORMATION
  Report Type: 
  Country: None (occurrence: None)
  Receive Date: 20061121
  Receipt Date: 20061110
  Transmission Date: 20070319
  Serious: Yes (Other)
  Sender: FDA-Public Use
  Company Number: CG-BOEHRINGER INGELHEIM PHARMACEUTICALS, INC.-2006-DE-05978GD

PATIENT

DRUGS (4)
  1. NEVIRAPINE [Suspect]
     Indication: HUMAN IMMUNODEFICIENCY VIRUS TRANSMISSION
  2. NEVIRAPINE [Suspect]
     Indication: PROPHYLAXIS
  3. AZT [Suspect]
     Indication: HUMAN IMMUNODEFICIENCY VIRUS TRANSMISSION
  4. AZT [Suspect]
     Indication: PROPHYLAXIS

REACTIONS (1)
  - HIV INFECTION [None]
